FAERS Safety Report 23491070 (Version 1)
Quarter: 2024Q1

REPORT INFORMATION
  Report Type: Spontaneous
  Country: US (occurrence: US)
  Receive Date: 20240207
  Receipt Date: 20240207
  Transmission Date: 20240409
  Serious: Yes (Hospitalization)
  Sender: FDA-Public Use
  Company Number: US-DRL-USA-LIT/USA/24/0001610

PATIENT
  Age: 15 Year
  Sex: Female

DRUGS (6)
  1. CLONIDINE [Suspect]
     Active Substance: CLONIDINE
     Indication: Bipolar disorder
  2. CLONIDINE [Suspect]
     Active Substance: CLONIDINE
     Indication: Intermittent explosive disorder
  3. RISPERIDONE [Suspect]
     Active Substance: RISPERIDONE
     Indication: Bipolar disorder
  4. RISPERIDONE [Suspect]
     Active Substance: RISPERIDONE
     Indication: Intermittent explosive disorder
  5. ARIPIPRAZOLE [Suspect]
     Active Substance: ARIPIPRAZOLE
     Indication: Bipolar disorder
     Route: 048
  6. ARIPIPRAZOLE [Suspect]
     Active Substance: ARIPIPRAZOLE
     Indication: Intermittent explosive disorder

REACTIONS (2)
  - Treatment noncompliance [Unknown]
  - Galactorrhoea [Unknown]
